FAERS Safety Report 24900180 (Version 1)
Quarter: 2025Q1

REPORT INFORMATION
  Report Type: Spontaneous
  Country: LT (occurrence: LT)
  Receive Date: 20250129
  Receipt Date: 20250129
  Transmission Date: 20250409
  Serious: Yes (Other)
  Sender: MYLAN
  Company Number: None

PATIENT
  Sex: Male

DRUGS (1)
  1. OLANZAPINE [Suspect]
     Active Substance: OLANZAPINE
     Indication: Product used for unknown indication
     Dosage: QD (THE MEDICINE WAS TAKEN AT AN UNKNOWN DOSE EVERY DAY FOR THREE YEARS)
     Route: 065

REACTIONS (3)
  - Erectile dysfunction [Recovered/Resolved]
  - Thinking abnormal [Recovered/Resolved]
  - Libido decreased [Recovered/Resolved]
